FAERS Safety Report 17290314 (Version 2)
Quarter: 2020Q1

REPORT INFORMATION
  Report Type: Spontaneous
  Country: ES (occurrence: ES)
  Receive Date: 20200121
  Receipt Date: 20200224
  Transmission Date: 20200409
  Serious: Yes (Hospitalization)
  Sender: FDA-Public Use
  Company Number: ES-SUN PHARMACEUTICAL INDUSTRIES LTD-2019RR-229046

PATIENT
  Age: 72 Year
  Sex: Male

DRUGS (7)
  1. ELIQUIS [Interacting]
     Active Substance: APIXABAN
     Indication: ATRIAL FIBRILLATION
     Dosage: 5 MILLIGRAM, DAILY
     Route: 048
     Dates: start: 201812, end: 20190803
  2. ELIQUIS [Interacting]
     Active Substance: APIXABAN
     Indication: ATRIAL FIBRILLATION
     Dosage: 2.5 MILLIGRAM, DAILY
     Route: 048
     Dates: start: 201706, end: 201812
  3. ELIQUIS [Interacting]
     Active Substance: APIXABAN
     Indication: CEREBROVASCULAR ACCIDENT PROPHYLAXIS
  4. VENLAFAXINE [Suspect]
     Active Substance: VENLAFAXINE HYDROCHLORIDE
     Indication: PRODUCT USED FOR UNKNOWN INDICATION
     Dosage: 37.5 MILLIGRAM, DAILY
     Route: 048
     Dates: start: 201302
  5. MIRTAZAPINA (2704A) [Concomitant]
     Active Substance: MIRTAZAPINE
     Indication: PRODUCT USED FOR UNKNOWN INDICATION
     Dosage: 30 MILLIGRAM, DAILY
     Route: 048
     Dates: start: 201807
  6. BALZAK 40 MG/5 MG COMPRIMIDOS RECUBIERTOS CON PELICULA, 28 COMPRIMIDOS [Concomitant]
     Indication: HYPERTENSION
     Dosage: 40 MILLIGRAM, DAILY
     Route: 048
     Dates: start: 20181217, end: 20190804
  7. BIRESP SPIROMAX 320 MICROGRAMOS / 9 MICROGRAMOS POLVO PARA INHALACI [Concomitant]
     Indication: CHRONIC OBSTRUCTIVE PULMONARY DISEASE
     Dosage: 320 MILLIGRAM, IN TOTAL
     Route: 055
     Dates: start: 20180706, end: 20190804

REACTIONS (2)
  - Epistaxis [Recovered/Resolved]
  - Labelled drug-drug interaction medication error [Unknown]

NARRATIVE: CASE EVENT DATE: 20190803
